FAERS Safety Report 20750100 (Version 2)
Quarter: 2022Q4

REPORT INFORMATION
  Report Type: Report from Study
  Country: US (occurrence: US)
  Receive Date: 20220426
  Receipt Date: 20221103
  Transmission Date: 20230113
  Serious: Yes (Hospitalization, Other)
  Sender: FDA-Public Use
  Company Number: US-HORIZON THERAPEUTICS-HZN-2022-003005

PATIENT

DRUGS (2)
  1. PENNSAID [Suspect]
     Active Substance: DICLOFENAC SODIUM
     Indication: Osteoarthritis
     Dosage: TAKE 2 PUMPS, 2 TIMES A DAY
     Route: 061
     Dates: start: 20200310
  2. PENNSAID [Suspect]
     Active Substance: DICLOFENAC SODIUM
     Indication: Rheumatoid arthritis
     Dosage: TAKE 1 PUMPS (PACKAGING SIZE 40 MG) 2 TIMES A DAY
     Route: 061

REACTIONS (3)
  - Viral infection [Unknown]
  - Arthritis [Unknown]
  - Incorrect dose administered [Unknown]

NARRATIVE: CASE EVENT DATE: 20220801
